FAERS Safety Report 7369912-3 (Version None)
Quarter: 2011Q1

REPORT INFORMATION
  Report Type: 
  Country: None (occurrence: None)
  Receive Date: 20110318
  Receipt Date: 20110318
  Transmission Date: 20110831
  Serious: Yes (Other)
  Sender: FDA-Public Use
  Company Number: None

PATIENT
  Age: 30 Year
  Sex: Male
  Weight: 72.5755 kg

DRUGS (5)
  1. ABILIFY [Concomitant]
  2. OMEPRAZOLE [Concomitant]
  3. TRICOR [Concomitant]
  4. ATRIPLA [Suspect]
     Indication: HIV INFECTION
     Dosage: 1 TABLET DAILY PO
     Route: 048
     Dates: start: 20091208, end: 20110211
  5. SERTRALINE HYDROCHLORIDE [Concomitant]

REACTIONS (1)
  - BLOOD CREATININE INCREASED [None]
